FAERS Safety Report 10559821 (Version 3)
Quarter: 2015Q1

REPORT INFORMATION
  Report Type: Spontaneous
  Country: US (occurrence: US)
  Receive Date: 20141103
  Receipt Date: 20150327
  Transmission Date: 20150720
  Serious: Yes (Death, Hospitalization)
  Sender: FDA-Public Use
  Company Number: US-PFIZER INC-2014302656

PATIENT
  Sex: Female

DRUGS (11)
  1. ZOFRAN [Concomitant]
     Active Substance: ONDANSETRON HYDROCHLORIDE
  2. IRON [Concomitant]
     Active Substance: IRON
  3. PERCOCET [Concomitant]
     Active Substance: ACETAMINOPHEN\OXYCODONE HYDROCHLORIDE
  4. VITAMIN B COMPLEX [Concomitant]
     Active Substance: CYANOCOBALAMIN\DEXPANTHENOL\NIACINAMIDE\PYRIDOXINE HYDROCHLORIDE\RIBOFLAVIN 5^-PHOSPHATE SODIUM\THIAMINE HYDROCHLORIDE\VITAMIN B COMPLEX
  5. STOOL SOFTENER [Concomitant]
     Active Substance: DOCUSATE CALCIUM
  6. OMEGA 3 [Concomitant]
     Active Substance: OMEGA-3 FATTY ACIDS
  7. SUTENT [Suspect]
     Active Substance: SUNITINIB MALATE
     Dosage: 50 MG DAILY, CYCLIC, 28 DAYS ON AND 14 DAYS OFF
     Dates: start: 20141025
  8. AMBIEN [Concomitant]
     Active Substance: ZOLPIDEM TARTRATE
     Dosage: UNK, AS NEEDED
  9. OXYCONTIN [Concomitant]
     Active Substance: OXYCODONE HYDROCHLORIDE
  10. VITAMIN C [Concomitant]
     Active Substance: ASCORBIC ACID
  11. BIS-DIGLYCERYL-POLYACYLADIPATE-2/COCONUT OIL [Concomitant]
     Dosage: 50 MG, UNK
     Route: 061
     Dates: start: 20141025

REACTIONS (24)
  - Dry mouth [Unknown]
  - Constipation [Unknown]
  - Insomnia [Unknown]
  - Epistaxis [Unknown]
  - Dysgeusia [Unknown]
  - Respiratory tract congestion [Unknown]
  - Vomiting [Unknown]
  - Death [Fatal]
  - Pruritus [Unknown]
  - Oral discomfort [Unknown]
  - Haematocrit decreased [Unknown]
  - Abdominal discomfort [Unknown]
  - Diarrhoea [Unknown]
  - Impaired healing [Unknown]
  - Chapped lips [Unknown]
  - Glossodynia [Unknown]
  - Haemorrhage [Unknown]
  - Platelet count decreased [Unknown]
  - Dry skin [Unknown]
  - Dyspepsia [Unknown]
  - Fatigue [Unknown]
  - Stomatitis [Unknown]
  - Decreased appetite [Unknown]
  - Chromaturia [Unknown]

NARRATIVE: CASE EVENT DATE: 20150228
